FAERS Safety Report 13329981 (Version 1)
Quarter: 2017Q1

REPORT INFORMATION
  Report Type: Spontaneous
  Country: US (occurrence: US)
  Receive Date: 20170313
  Receipt Date: 20170313
  Transmission Date: 20170428
  Serious: Yes (Other)
  Sender: FDA-Public Use
  Company Number: US-ALLERGAN-1709460US

PATIENT
  Age: 44 Year
  Sex: Female
  Weight: 64.4 kg

DRUGS (1)
  1. LINZESS [Suspect]
     Active Substance: LINACLOTIDE
     Indication: IRRITABLE BOWEL SYNDROME
     Dosage: 290 ?G, QD

REACTIONS (5)
  - Confusional state [Unknown]
  - Pyrexia [Unknown]
  - Off label use [Unknown]
  - Dizziness [Unknown]
  - Diarrhoea [Recovered/Resolved]
